FAERS Safety Report 4429772-7 (Version None)
Quarter: 2004Q3

REPORT INFORMATION
  Report Type: 
  Country: None (occurrence: None)
  Receive Date: 20040817
  Receipt Date: 20040817
  Transmission Date: 20050211
  Serious: Yes (Death, Hospitalization)
  Sender: FDA-Public Use
  Company Number: None

PATIENT
  Sex: Male

DRUGS (9)
  1. CELEBREX [Suspect]
     Indication: PANCREATIC CARCINOMA
     Dosage: 400 MG PO BID
     Route: 048
     Dates: start: 20040722, end: 20040811
  2. THALIDOMIDE [Suspect]
     Indication: PANCREATIC CARCINOMA
     Dosage: 200 MG PO NIGHTLY
     Route: 048
     Dates: start: 20040722, end: 20040811
  3. GEMCITABINE [Concomitant]
  4. NEXIUM [Concomitant]
  5. FENTANYL [Concomitant]
  6. REMERON [Concomitant]
  7. KLONOPIN [Concomitant]
  8. PERCOCET [Concomitant]
  9. THORAZINE [Concomitant]

REACTIONS (6)
  - BLOOD SODIUM DECREASED [None]
  - DYSPHAGIA [None]
  - HYPOTENSION [None]
  - HYPOXIA [None]
  - LYMPHOCYTE COUNT DECREASED [None]
  - TACHYCARDIA [None]
